FAERS Safety Report 15401865 (Version 4)
Quarter: 2019Q2

REPORT INFORMATION
  Report Type: Spontaneous
  Country: US (occurrence: US)
  Receive Date: 20180919
  Receipt Date: 20190521
  Transmission Date: 20190711
  Serious: Yes (Other)
  Sender: FDA-Public Use
  Company Number: US-SA-2018SA261040

PATIENT
  Sex: Female

DRUGS (2)
  1. XOLAIR [Concomitant]
     Active Substance: OMALIZUMAB
  2. DUPIXENT [Suspect]
     Active Substance: DUPILUMAB
     Indication: PRODUCT USED FOR UNKNOWN INDICATION

REACTIONS (2)
  - Anaphylactic reaction [Unknown]
  - Dermatitis contact [Unknown]
